FAERS Safety Report 11248383 (Version 1)
Quarter: 2015Q3

REPORT INFORMATION
  Report Type: Spontaneous
  Country: US (occurrence: US)
  Receive Date: 20150708
  Receipt Date: 20150708
  Transmission Date: 20151125
  Serious: No
  Sender: FDA-Public Use
  Company Number: US-ELI_LILLY_AND_COMPANY-US200904000049

PATIENT
  Sex: Female

DRUGS (3)
  1. SOMA [Concomitant]
     Active Substance: CARISOPRODOL
     Dosage: UNK, UNKNOWN
     Route: 065
  2. PROZAC [Suspect]
     Active Substance: FLUOXETINE HYDROCHLORIDE
     Indication: MAJOR DEPRESSION
     Dosage: 40 MG, UNKNOWN
     Route: 065
     Dates: start: 1991
  3. CELEBREX [Concomitant]
     Active Substance: CELECOXIB
     Dosage: UNK, UNKNOWN
     Route: 065

REACTIONS (4)
  - Osteoarthritis [Unknown]
  - Neuralgia [Unknown]
  - Arthritis [Unknown]
  - Depression [Unknown]

NARRATIVE: CASE EVENT DATE: 2004
